FAERS Safety Report 7921224-2 (Version None)
Quarter: 2011Q4

REPORT INFORMATION
  Report Type: 
  Country: None (occurrence: None)
  Receive Date: 20111117
  Receipt Date: 20111114
  Transmission Date: 20120403
  Serious: No
  Sender: FDA-Public Use
  Company Number: US-PFIZER INC-2011234298

PATIENT
  Sex: Male
  Weight: 77.098 kg

DRUGS (5)
  1. SIMVASTATIN [Concomitant]
     Indication: CARDIOVASCULAR EVENT PROPHYLAXIS
     Dosage: ONE DAILY
     Dates: start: 19990101
  2. ACETYLSALICYLIC ACID [Concomitant]
     Indication: CARDIOVASCULAR EVENT PROPHYLAXIS
     Dosage: 81 MG,DAILY
     Dates: start: 19990101
  3. XALATAN [Suspect]
     Indication: GLAUCOMA
     Dosage: ONE DROP EACH EYE
     Route: 047
     Dates: start: 20100301, end: 20110201
  4. LATANOPROST [Suspect]
     Indication: GLAUCOMA
     Dosage: 1 GTT IN EACH EYE DAILY
     Route: 047
     Dates: start: 20110301
  5. PRAVASTATIN [Concomitant]
     Indication: CARDIOVASCULAR EVENT PROPHYLAXIS
     Dosage: ONE DAILY
     Dates: start: 19990101

REACTIONS (1)
  - HAIR GROWTH ABNORMAL [None]
